FAERS Safety Report 24063062 (Version 1)
Quarter: 2024Q3

REPORT INFORMATION
  Report Type: Report from Study
  Country: DK (occurrence: DK)
  Receive Date: 20240709
  Receipt Date: 20240709
  Transmission Date: 20241016
  Serious: Yes (Hospitalization)
  Sender: ROCHE
  Company Number: DK-ROCHE-10000012858

PATIENT

DRUGS (1)
  1. RITUXIMAB [Interacting]
     Active Substance: RITUXIMAB
     Indication: Rheumatic disorder
     Route: 042

REACTIONS (3)
  - Vaccination failure [Unknown]
  - Vaccine interaction [Unknown]
  - COVID-19 [Unknown]
